FAERS Safety Report 6987617-5 (Version None)
Quarter: 2010Q3

REPORT INFORMATION
  Report Type: 
  Country: None (occurrence: None)
  Receive Date: 20100916
  Receipt Date: 20100908
  Transmission Date: 20110219
  Serious: Yes (Other)
  Sender: FDA-Public Use
  Company Number: GB-ASTRAZENECA-2010SE42231

PATIENT
  Age: 11 Year
  Sex: Female

DRUGS (3)
  1. BUPIVACAINE HCL [Suspect]
     Indication: LOCAL ANAESTHESIA
     Route: 008
  2. BUPIVACAINE HCL [Suspect]
     Route: 008
  3. FENTANYL CITRATE [Suspect]
     Indication: LOCAL ANAESTHESIA
     Dosage: 2 UG/ML
     Route: 008

REACTIONS (3)
  - HYPOAESTHESIA [None]
  - INCORRECT ROUTE OF DRUG ADMINISTRATION [None]
  - PARALYSIS [None]
